FAERS Safety Report 4829220-9 (Version None)
Quarter: 2005Q4

REPORT INFORMATION
  Report Type: 
  Country: None (occurrence: None)
  Receive Date: 20051028
  Receipt Date: 20050817
  Transmission Date: 20060501
  Serious: No
  Sender: FDA-Public Use
  Company Number: COT_0111_2005

PATIENT
  Age: 50 Year
  Sex: Female
  Weight: 92.9874 kg

DRUGS (23)
  1. VENTAVIS [Suspect]
     Indication: PULMONARY HYPERTENSION
     Dosage: 2.5 MCG ONCE IH
     Route: 055
     Dates: start: 20050610
  2. VENTAVIS [Suspect]
     Indication: PULMONARY HYPERTENSION
     Dosage: 5 MCG 5XD IH
     Route: 055
     Dates: start: 20050610, end: 20050615
  3. VENTAVIS [Suspect]
     Indication: PULMONARY HYPERTENSION
     Dosage: 2.5 MCG 6XD IH
     Route: 055
     Dates: start: 20050616
  4. NORVASC [Concomitant]
  5. ASPIRIN [Concomitant]
  6. ADVICOR [Concomitant]
  7. LANTUS [Concomitant]
  8. NOVOLOG [Concomitant]
  9. METFORMIN [Concomitant]
  10. ATIVAN [Concomitant]
  11. PREVACID [Concomitant]
  12. MEDROL [Concomitant]
  13. LASIX [Concomitant]
  14. SPIRONOLACTONE [Concomitant]
  15. PLAQUENIL [Concomitant]
  16. POTASSIUM CHLORIDE [Concomitant]
  17. CALTRATE [Concomitant]
  18. VIAGRA [Concomitant]
  19. QUININE SULFATE [Concomitant]
  20. MOTRIN [Concomitant]
  21. ULTRAM [Concomitant]
  22. AMBIEN [Concomitant]
  23. FERROUS SULFATE TAB [Concomitant]

REACTIONS (4)
  - COUGH [None]
  - DIZZINESS [None]
  - MIGRAINE [None]
  - NAUSEA [None]
